FAERS Safety Report 4389913-7 (Version None)
Quarter: 2004Q2

REPORT INFORMATION
  Report Type: 
  Country: None (occurrence: None)
  Receive Date: 20040630
  Receipt Date: 20040616
  Transmission Date: 20050107
  Serious: Yes (Hospitalization)
  Sender: FDA-Public Use
  Company Number: 2004SE03466

PATIENT
  Age: 63 Year
  Sex: Male

DRUGS (1)
  1. LOSEC [Suspect]
     Indication: REFLUX OESOPHAGITIS
     Dosage: 20 MG QD PO
     Route: 048
     Dates: start: 19960101, end: 20030113

REACTIONS (10)
  - ALCOHOL USE [None]
  - ASCITES [None]
  - BLOOD IMMUNOGLOBULIN A INCREASED [None]
  - BLOOD IMMUNOGLOBULIN G INCREASED [None]
  - BLOOD IMMUNOGLOBULIN M INCREASED [None]
  - HAEMATOCHEZIA [None]
  - HEPATIC CIRRHOSIS [None]
  - LOOSE STOOLS [None]
  - PAIN [None]
  - WEIGHT INCREASED [None]
